FAERS Safety Report 7557926-X (Version None)
Quarter: 2011Q2

REPORT INFORMATION
  Report Type: 
  Country: None (occurrence: None)
  Receive Date: 20110620
  Receipt Date: 20110613
  Transmission Date: 20111010
  Serious: Yes (Other)
  Sender: FDA-Public Use
  Company Number: B0718174A

PATIENT
  Sex: Female

DRUGS (1)
  1. PROMACTA [Suspect]
     Route: 065

REACTIONS (3)
  - THROMBOCYTOPENIA [None]
  - EPISTAXIS [None]
  - GINGIVAL BLEEDING [None]
